FAERS Safety Report 11285996 (Version 2)
Quarter: 2015Q3

REPORT INFORMATION
  Report Type: Spontaneous
  Country: US (occurrence: US)
  Receive Date: 20150721
  Receipt Date: 20150804
  Transmission Date: 20151125
  Serious: No
  Sender: FDA-Public Use
  Company Number: US-AMGEN-USASP2015072342

PATIENT
  Age: 44 Year
  Sex: Female

DRUGS (1)
  1. ENBREL [Suspect]
     Active Substance: ETANERCEPT
     Indication: PRODUCT USED FOR UNKNOWN INDICATION
     Dosage: UNK UNK, UNK
     Route: 065
     Dates: start: 201504

REACTIONS (13)
  - Musculoskeletal stiffness [Unknown]
  - Swelling [Unknown]
  - Injection site reaction [Unknown]
  - Injection site urticaria [Unknown]
  - Peripheral swelling [Unknown]
  - Injection site pain [Unknown]
  - Injection site bruising [Unknown]
  - Drug dose omission [Recovered/Resolved]
  - Arthritis [Unknown]
  - Wrong technique in product usage process [Unknown]
  - Pain [Unknown]
  - Muscle fatigue [Unknown]
  - Joint swelling [Unknown]

NARRATIVE: CASE EVENT DATE: 2015
